FAERS Safety Report 8313032-8 (Version None)
Quarter: 2012Q2

REPORT INFORMATION
  Report Type: 
  Country: None (occurrence: None)
  Receive Date: 20120424
  Receipt Date: 20120409
  Transmission Date: 20120825
  Serious: Yes (Other)
  Sender: FDA-Public Use
  Company Number: 2012MA004866

PATIENT

DRUGS (1)
  1. GABAPENTIN [Suspect]
     Indication: EPILEPSY

REACTIONS (4)
  - CONVULSION [None]
  - CONDITION AGGRAVATED [None]
  - PRODUCT SUBSTITUTION ISSUE [None]
  - TOXICITY TO VARIOUS AGENTS [None]
